FAERS Safety Report 5797203-0 (Version None)
Quarter: 2008Q3

REPORT INFORMATION
  Report Type: 
  Country: None (occurrence: None)
  Receive Date: 20080701
  Receipt Date: 20080623
  Transmission Date: 20090109
  Serious: Yes (Other)
  Sender: FDA-Public Use
  Company Number: US-ABBOTT-08P-163-0459645-00

PATIENT
  Sex: Female
  Weight: 52.21 kg

DRUGS (6)
  1. HUMIRA [Suspect]
     Indication: RHEUMATOID ARTHRITIS
     Route: 058
     Dates: start: 20040101, end: 20060401
  2. HUMIRA [Suspect]
     Route: 058
     Dates: start: 20060401, end: 20080402
  3. HUMIRA [Suspect]
     Dates: start: 20080526, end: 20080602
  4. LEVOTHYROXINE SODIUM [Concomitant]
     Indication: HYPOTHYROIDISM
     Route: 048
     Dates: start: 19800101
  5. LISINOPRIL [Concomitant]
     Indication: HYPERTENSION
     Route: 048
  6. ATENOLOL [Concomitant]
     Indication: HYPERTENSION
     Route: 048

REACTIONS (8)
  - CHEST DISCOMFORT [None]
  - DRUG HYPERSENSITIVITY [None]
  - HEART RATE DECREASED [None]
  - MUSCLE TIGHTNESS [None]
  - PRURITUS [None]
  - RHEUMATOID ARTHRITIS [None]
  - THROAT TIGHTNESS [None]
  - URTICARIA [None]
